FAERS Safety Report 16445331 (Version 1)
Quarter: 2019Q2

REPORT INFORMATION
  Report Type: Spontaneous
  Country: US (occurrence: US)
  Receive Date: 20190618
  Receipt Date: 20190618
  Transmission Date: 20190711
  Serious: No
  Sender: FDA-Public Use
  Company Number: US-009507513-1906USA003855

PATIENT
  Age: 85 Year
  Sex: Male
  Weight: 81.63 kg

DRUGS (5)
  1. BELSOMRA [Suspect]
     Active Substance: SUVOREXANT
     Dosage: 20 MILLILITER
     Route: 048
  2. PENICILLIN (UNSPECIFIED) [Concomitant]
     Active Substance: PENICILLIN
  3. INSULIN [Concomitant]
     Active Substance: INSULIN NOS
  4. METFORMIN [Concomitant]
     Active Substance: METFORMIN HYDROCHLORIDE
  5. BELSOMRA [Suspect]
     Active Substance: SUVOREXANT
     Indication: INSOMNIA
     Dosage: 10 MILLILITER
     Route: 048
     Dates: start: 20190605

REACTIONS (1)
  - Drug ineffective [Not Recovered/Not Resolved]

NARRATIVE: CASE EVENT DATE: 20190605
